FAERS Safety Report 15342427 (Version 1)
Quarter: 2018Q3

REPORT INFORMATION
  Report Type: Spontaneous
  Country: CO (occurrence: CO)
  Receive Date: 20180902
  Receipt Date: 20180902
  Transmission Date: 20181010
  Serious: Yes (Hospitalization)
  Sender: FDA-Public Use
  Company Number: PHHY2018CO085046

PATIENT
  Sex: Male

DRUGS (1)
  1. RITALINA [Suspect]
     Active Substance: METHYLPHENIDATE HYDROCHLORIDE
     Indication: ATTENTION DEFICIT/HYPERACTIVITY DISORDER
     Dosage: 5 MG, BID (5 MG IN THE MORNING AND 5 MG IN THE AFTERNOON)
     Route: 065
     Dates: start: 201702

REACTIONS (1)
  - Intussusception [Unknown]
